FAERS Safety Report 4784764-3 (Version None)
Quarter: 2005Q3

REPORT INFORMATION
  Report Type: 
  Country: None (occurrence: None)
  Receive Date: 20050929
  Receipt Date: 20050929
  Transmission Date: 20060218
  Serious: Yes (Hospitalization, Disabling)
  Sender: FDA-Public Use
  Company Number: None

PATIENT
  Age: 48 Year
  Sex: Female
  Weight: 89.8122 kg

DRUGS (2)
  1. DEPO-MEDROL [Suspect]
     Indication: BACK PAIN
     Dosage: 120 MG ONCE EPIDURAL
     Route: 008
     Dates: start: 20050809, end: 20050809
  2. DEPO-MEDROL [Suspect]
     Indication: INTERVERTEBRAL DISC PROTRUSION
     Dosage: 120 MG ONCE EPIDURAL
     Route: 008
     Dates: start: 20050809, end: 20050809

REACTIONS (14)
  - ANAL DISCOMFORT [None]
  - BLOOD PRESSURE INCREASED [None]
  - BURNING SENSATION [None]
  - COCCYDYNIA [None]
  - DIFFICULTY IN WALKING [None]
  - DYSSTASIA [None]
  - HEADACHE [None]
  - IMPAIRED DRIVING ABILITY [None]
  - IMPAIRED WORK ABILITY [None]
  - MOBILITY DECREASED [None]
  - PAIN [None]
  - PARAESTHESIA [None]
  - SENSATION OF PRESSURE [None]
  - TRANSIENT ISCHAEMIC ATTACK [None]
